FAERS Safety Report 5747488-1 (Version None)
Quarter: 2008Q2

REPORT INFORMATION
  Report Type: 
  Country: None (occurrence: None)
  Receive Date: 20080523
  Receipt Date: 20080516
  Transmission Date: 20081010
  Serious: Yes (Other)
  Sender: FDA-Public Use
  Company Number: US-BAYER-200811802BCC

PATIENT
  Sex: Male
  Weight: 91 kg

DRUGS (3)
  1. ALEVE [Suspect]
     Indication: ARTHRITIS
     Route: 048
  2. ALEVE [Suspect]
     Route: 048
  3. ALEVE [Suspect]
     Route: 048

REACTIONS (1)
  - RECTAL HAEMORRHAGE [None]
